FAERS Safety Report 10757401 (Version 2)
Quarter: 2015Q3

REPORT INFORMATION
  Report Type: Spontaneous
  Country: US (occurrence: None)
  Receive Date: 20150130
  Receipt Date: 20150806
  Transmission Date: 20151125
  Serious: Yes (Hospitalization, Other)
  Sender: FDA-Public Use
  Company Number: UCM201501-000037

PATIENT
  Age: 23 Year
  Sex: Male
  Weight: 81.6 kg

DRUGS (12)
  1. IMIPRAMINE (IMIPRAMINE) (IMIPRAMINE) [Concomitant]
     Active Substance: IMIPRAMINE
  2. CLONAZEPAM. [Concomitant]
     Active Substance: CLONAZEPAM
  3. DULOXETINE. [Concomitant]
     Active Substance: DULOXETINE
  4. ADDERALL (DEXTROAMPHETAMINE, AMPHETAMINE) [Concomitant]
  5. KETAMINE (KETAMINE) [Concomitant]
     Active Substance: KETAMINE
  6. MEFENAMIC ACID (MEFENAMIC ACID) [Concomitant]
  7. LIDOACINE (LIDOACINE) [Concomitant]
  8. ARIPIPRAZOLE. [Concomitant]
     Active Substance: ARIPIPRAZOLE
  9. CLONIDINE HCL (CLONIDINE HCL) (CLONIDINE HCL) [Suspect]
     Active Substance: CLONIDINE HYDROCHLORIDE
     Dosage: 0.2% (W/W)
  10. GABAPENTIN (GABAPENTIN) [Concomitant]
     Active Substance: GABAPENTIN
  11. OXYCODONE/ACETAMINOPHEN [Concomitant]
     Active Substance: ACETAMINOPHEN\OXYCODONE HYDROCHLORIDE
  12. ZOLPIDEM [Concomitant]
     Active Substance: ZOLPIDEM\ZOLPIDEM TARTRATE

REACTIONS (6)
  - Toxicity to various agents [None]
  - Hypertensive crisis [None]
  - Bradycardia [None]
  - Subarachnoid haemorrhage [None]
  - Mental status changes [None]
  - Intentional overdose [None]
